FAERS Safety Report 23066308 (Version 1)
Quarter: 2023Q4

REPORT INFORMATION
  Report Type: Spontaneous
  Country: FR (occurrence: FR)
  Receive Date: 20231015
  Receipt Date: 20231015
  Transmission Date: 20240110
  Serious: Yes (Life-Threatening)
  Sender: FDA-Public Use
  Company Number: None

PATIENT
  Age: 52 Year
  Sex: Female

DRUGS (13)
  1. DIAZEPAM [Interacting]
     Active Substance: DIAZEPAM
     Indication: Psychotic disorder
     Dates: end: 202307
  2. GABAPENTIN [Interacting]
     Active Substance: GABAPENTIN
     Indication: Psychotic disorder
  3. LOXAPINE [Interacting]
     Active Substance: LOXAPINE
     Indication: Psychotic disorder
     Dates: end: 202307
  4. HALDOL [Interacting]
     Active Substance: HALOPERIDOL
     Indication: Psychotic disorder
  5. CARBAMAZEPINE [Interacting]
     Active Substance: CARBAMAZEPINE
     Indication: Psychotic disorder
  6. TRIHEXYPHENIDYL [Interacting]
     Active Substance: TRIHEXYPHENIDYL
     Indication: Extrapyramidal disorder
  7. ELIQUIS [Concomitant]
     Active Substance: APIXABAN
     Indication: Product used for unknown indication
  8. KARDEGIC [Concomitant]
     Active Substance: ASPIRIN DL-LYSINE
     Indication: Product used for unknown indication
     Dosage: IN SACHET-DOSE
  9. TAHOR [Concomitant]
     Active Substance: ATORVASTATIN CALCIUM
     Indication: Product used for unknown indication
  10. FOLIC ACID [Concomitant]
     Active Substance: FOLIC ACID
     Indication: Product used for unknown indication
  11. LANSOPRAZOLE [Concomitant]
     Active Substance: LANSOPRAZOLE
     Indication: Product used for unknown indication
  12. INSULIN GLARGINE [Concomitant]
     Active Substance: INSULIN GLARGINE
     Indication: Product used for unknown indication
  13. ANETHOLTRITHION [Concomitant]
     Active Substance: ANETHOLTRITHION
     Indication: Product used for unknown indication

REACTIONS (4)
  - Acute respiratory distress syndrome [Recovered/Resolved]
  - Dysphagia [Recovered/Resolved]
  - Pneumonia aspiration [Recovered/Resolved]
  - Drug interaction [Recovered/Resolved]

NARRATIVE: CASE EVENT DATE: 20230717
